FAERS Safety Report 6297827-0 (Version None)
Quarter: 2009Q3

REPORT INFORMATION
  Report Type: 
  Country: None (occurrence: None)
  Receive Date: 20090805
  Receipt Date: 20090407
  Transmission Date: 20100115
  Serious: Yes (Hospitalization)
  Sender: FDA-Public Use
  Company Number: PHHO2009US04666

PATIENT
  Sex: Female
  Weight: 68.8 kg

DRUGS (3)
  1. PTK 787A T35913+ [Suspect]
     Indication: NEUROENDOCRINE CARCINOMA
     Dosage: 13,500 MG
     Route: 048
     Dates: start: 20081124
  2. RAD001C [Suspect]
     Indication: NEUROENDOCRINE CARCINOMA
     Dosage: 100 MG
     Route: 048
     Dates: start: 20081124
  3. SIMVASTATIN [Concomitant]

REACTIONS (8)
  - ABDOMINAL PAIN [None]
  - GASTRITIS [None]
  - HAEMATOCHEZIA [None]
  - MUCOSAL INFLAMMATION [None]
  - NAUSEA [None]
  - PANCREATITIS [None]
  - PEPTIC ULCER [None]
  - VOMITING [None]
